FAERS Safety Report 9220776 (Version 1)
Quarter: 2013Q2

REPORT INFORMATION
  Report Type: Spontaneous
  Country: FR (occurrence: FR)
  Receive Date: 20130409
  Receipt Date: 20130409
  Transmission Date: 20140414
  Serious: Yes (Hospitalization)
  Sender: FDA-Public Use
  Company Number: FR-009507513-1304FRA001318

PATIENT
  Age: 57 Year
  Sex: Female

DRUGS (3)
  1. TEMODAL [Suspect]
     Dosage: 150 MG, QD
     Route: 048
     Dates: start: 201205, end: 201211
  2. ZELBORAF [Suspect]
     Indication: METASTATIC MALIGNANT MELANOMA
     Dosage: 720 MG, BID
     Route: 048
     Dates: start: 20110920, end: 201211
  3. KEPPRA [Suspect]
     Dosage: UNK
     Route: 048
     Dates: start: 20110815

REACTIONS (1)
  - Myocardial infarction [Recovered/Resolved]
